FAERS Safety Report 10786058 (Version 1)
Quarter: 2015Q1

REPORT INFORMATION
  Report Type: Report from Study
  Country: MX (occurrence: MX)
  Receive Date: 20150211
  Receipt Date: 20150211
  Transmission Date: 20150721
  Serious: Yes (Death)
  Sender: FDA-Public Use
  Company Number: PHHY2015MX015976

PATIENT
  Age: 53 Year
  Sex: Female

DRUGS (2)
  1. EXJADE [Suspect]
     Active Substance: DEFERASIROX
     Indication: PAROXYSMAL NOCTURNAL HAEMOGLOBINURIA
     Dosage: 30 MG/KG, UNK
     Route: 065
     Dates: start: 20120915
  2. EXJADE [Suspect]
     Active Substance: DEFERASIROX
     Dosage: 23 MG/KG, UNK
     Route: 065

REACTIONS (7)
  - Malaise [Unknown]
  - Product use issue [Unknown]
  - Death [Fatal]
  - Pain in extremity [Unknown]
  - Fatigue [Unknown]
  - Platelet count decreased [Unknown]
  - Haemoglobin decreased [Unknown]

NARRATIVE: CASE EVENT DATE: 20120915
